FAERS Safety Report 24803258 (Version 1)
Quarter: 2025Q1

REPORT INFORMATION
  Report Type: Spontaneous
  Country: GB (occurrence: GB)
  Receive Date: 20250103
  Receipt Date: 20250103
  Transmission Date: 20250409
  Serious: Yes (Other)
  Sender: TEVA
  Company Number: GB-MHRA-TPP7992519C10522427YC1735057230405

PATIENT
  Age: 17 Year
  Sex: Female
  Weight: 109 kg

DRUGS (4)
  1. FLUOXETINE [Suspect]
     Active Substance: FLUOXETINE HYDROCHLORIDE
     Indication: Ill-defined disorder
     Route: 065
     Dates: start: 20241129
  2. AMITRIPTYLINE HYDROCHLORIDE [Concomitant]
     Active Substance: AMITRIPTYLINE HYDROCHLORIDE
     Indication: Ill-defined disorder
     Dosage: TAKE ONE IN  EVENING TO AID SLEEP AS NEEDED
     Route: 065
     Dates: start: 20241104, end: 20241202
  3. FERROUS FUMARATE [Concomitant]
     Active Substance: FERROUS FUMARATE
     Indication: Ill-defined disorder
     Dosage: ONE DAILY
     Route: 065
     Dates: start: 20230929
  4. FOLIC ACID [Concomitant]
     Active Substance: FOLIC ACID
     Indication: Ill-defined disorder
     Route: 065
     Dates: start: 20241119

REACTIONS (2)
  - Poor quality sleep [Unknown]
  - Suicidal ideation [Recovering/Resolving]
